FAERS Safety Report 9206767 (Version 2)
Quarter: 2013Q2

REPORT INFORMATION
  Report Type: Spontaneous
  Country: US (occurrence: US)
  Receive Date: 20130403
  Receipt Date: 20130508
  Transmission Date: 20140414
  Serious: Yes (Hospitalization)
  Sender: FDA-Public Use
  Company Number: US-BAYER-2013-039236

PATIENT
  Age: 26 Year
  Sex: Female
  Weight: 86.17 kg

DRUGS (1)
  1. YAZ [Suspect]
     Indication: ACNE
     Dosage: UNK
     Dates: start: 200911

REACTIONS (4)
  - Deep vein thrombosis [None]
  - Injury [None]
  - Pain [None]
  - Pain [None]
